FAERS Safety Report 9343966 (Version 1)
Quarter: 2013Q2

REPORT INFORMATION
  Report Type: Spontaneous
  Country: US (occurrence: US)
  Receive Date: 20130612
  Receipt Date: 20130612
  Transmission Date: 20140414
  Serious: No
  Sender: FDA-Public Use
  Company Number: US-ASTRAZENECA-2013SE38600

PATIENT
  Age: 43 Year
  Sex: Female
  Weight: 50.8 kg

DRUGS (2)
  1. RHINOCORT AQUA [Suspect]
     Indication: HYPERSENSITIVITY
     Dosage: 2 SPRAYS DAILY
     Route: 045
     Dates: start: 2007, end: 201301
  2. ASTEPRO 0.15% [Concomitant]
     Indication: HYPERSENSITIVITY

REACTIONS (2)
  - Dry throat [Recovered/Resolved]
  - Tongue dry [Recovered/Resolved]
